FAERS Safety Report 13023932 (Version 1)
Quarter: 2016Q4

REPORT INFORMATION
  Report Type: Spontaneous
  Country: US (occurrence: US)
  Receive Date: 20161213
  Receipt Date: 20161213
  Transmission Date: 20170207
  Serious: Yes (Hospitalization)
  Sender: FDA-Public Use
  Company Number: US-SHIRE-US201618346

PATIENT

DRUGS (4)
  1. ADDERALL XR [Suspect]
     Active Substance: AMPHETAMINE ASPARTATE\AMPHETAMINE SULFATE\DEXTROAMPHETAMINE SACCHARATE\DEXTROAMPHETAMINE SULFATE
     Indication: DRUG DEPENDENCE
     Dosage: 10 MG, 1X/DAY:QD
     Route: 048
  2. ADDERALL XR [Suspect]
     Active Substance: AMPHETAMINE ASPARTATE\AMPHETAMINE SULFATE\DEXTROAMPHETAMINE SACCHARATE\DEXTROAMPHETAMINE SULFATE
     Dosage: TITRATED UP TO MAXIMUM 60 MG IN 2 WEEKS, 1X/DAY:QD
     Route: 048
  3. TOPIRAMATE. [Suspect]
     Active Substance: TOPIRAMATE
     Indication: DRUG DEPENDENCE
     Dosage: 25 MG, 1X/DAY:QD
     Route: 065
  4. TOPIRAMATE. [Suspect]
     Active Substance: TOPIRAMATE
     Dosage: TITRATED UP TO MAXIMUM DOSE OF 150 MG OVER 6 WEEKS, 1X/DAY:QD
     Route: 065

REACTIONS (10)
  - Paraesthesia [Unknown]
  - Anxiety [Unknown]
  - Product use issue [Unknown]
  - Increased appetite [Unknown]
  - Insomnia [Unknown]
  - Decreased appetite [Unknown]
  - Irritability [Unknown]
  - Substance-induced mood disorder [Unknown]
  - Pruritus [Unknown]
  - Prescribed overdose [Unknown]
